FAERS Safety Report 6781123-9 (Version None)
Quarter: 2010Q2

REPORT INFORMATION
  Report Type: 
  Country: None (occurrence: None)
  Receive Date: 20100615
  Receipt Date: 20100330
  Transmission Date: 20101027
  Serious: Yes (Hospitalization)
  Sender: FDA-Public Use
  Company Number: 2010SCPR001320

PATIENT
  Age: 84 Year
  Sex: Female

DRUGS (7)
  1. IBUPROFEN [Suspect]
     Indication: OSTEOARTHRITIS
     Dosage: ORAL
     Route: 048
     Dates: start: 20080601, end: 20080805
  2. AGGRENOX [Suspect]
     Indication: THROMBOSIS PROPHYLAXIS
     Dosage: MG,BID,ORAL
     Route: 048
     Dates: start: 20060501, end: 20060805
  3. ENABETA COMP (ENALAPRIL MALEATE, HYDROCHLOROTHIAZIDE) UNKNOWN [Suspect]
     Indication: HYPERTENSION
     Dosage: 10/25 QD, ORAL
     Route: 048
     Dates: start: 20060501, end: 20080805
  4. INDOMETHACIN [Suspect]
     Indication: OSTEOARTHRITIS
     Dosage: 100 MG, DAILY, ORAL
     Route: 048
     Dates: start: 20060601, end: 20080701
  5. FELOCOR (FELODIPINE) [Concomitant]
  6. LEVOTHYROXINE SODIUM (LEVOTHYROXINE SODIUM) UNKNOWN [Concomitant]
  7. METOCLOPRAMIDE [Concomitant]

REACTIONS (6)
  - GASTRITIS EROSIVE [None]
  - HEADACHE [None]
  - HYPOKALAEMIA [None]
  - HYPONATRAEMIA [None]
  - NAUSEA [None]
  - VOMITING [None]
